FAERS Safety Report 5406374-7 (Version None)
Quarter: 2007Q3

REPORT INFORMATION
  Report Type: 
  Country: None (occurrence: None)
  Receive Date: 20070806
  Receipt Date: 20070801
  Transmission Date: 20080115
  Serious: Yes (Life-Threatening, Other)
  Sender: FDA-Public Use
  Company Number: CH-GENENTECH-245569

PATIENT
  Age: 82 Year
  Sex: Female

DRUGS (1)
  1. ACTIVASE [Suspect]
     Indication: CEREBRAL ISCHAEMIA
     Route: 042

REACTIONS (3)
  - COMPLEX PARTIAL SEIZURES [None]
  - ENCEPHALOPATHY [None]
  - STATUS EPILEPTICUS [None]
